FAERS Safety Report 23509440 (Version 2)
Quarter: 2024Q1

REPORT INFORMATION
  Report Type: Spontaneous
  Country: CA (occurrence: CA)
  Receive Date: 20240210
  Receipt Date: 20240316
  Transmission Date: 20240410
  Serious: Yes (Hospitalization, Other)
  Sender: FDA-Public Use
  Company Number: CA-CELLTRION INC.-2024CA003125

PATIENT

DRUGS (3)
  1. INFLECTRA [Suspect]
     Active Substance: INFLIXIMAB-DYYB
     Indication: Crohn^s disease
     Dosage: W 0, 2, 6, THEN EVERY 8 WEEKS
     Route: 042
     Dates: start: 20231130
  2. INFLECTRA [Suspect]
     Active Substance: INFLIXIMAB-DYYB
     Dosage: W 0, 2, 6, THEN EVERY 8 WEEKS
     Route: 042
     Dates: start: 20240111
  3. INFLECTRA [Suspect]
     Active Substance: INFLIXIMAB-DYYB
     Dosage: W 0, 2, 6, THEN EVERY 8 WEEKS (8 WEEKS)
     Route: 042
     Dates: start: 20240307

REACTIONS (3)
  - Colon cancer [Recovered/Resolved with Sequelae]
  - Thrombosis [Recovered/Resolved with Sequelae]
  - Arthralgia [Recovered/Resolved]

NARRATIVE: CASE EVENT DATE: 20240112
